FAERS Safety Report 8525824-0 (Version None)
Quarter: 2012Q3

REPORT INFORMATION
  Report Type: 
  Country: None (occurrence: None)
  Receive Date: 20120720
  Receipt Date: 20120710
  Transmission Date: 20120928
  Serious: Yes (Other)
  Sender: FDA-Public Use
  Company Number: US-VERTEX PHARMACEUTICALS INC.-AE-2012-010320

PATIENT
  Sex: Female

DRUGS (3)
  1. INCIVEK [Suspect]
     Indication: HEPATITIS C
     Route: 048
     Dates: start: 20120602, end: 20120625
  2. RIBAVIRIN [Concomitant]
     Indication: HEPATITIS C
     Dates: start: 20120602, end: 20120625
  3. PEGASYS [Concomitant]
     Indication: HEPATITIS C
     Dates: start: 20120602, end: 20120625

REACTIONS (3)
  - DIARRHOEA [None]
  - SYNCOPE [None]
  - NAUSEA [None]
